FAERS Safety Report 4873779-2 (Version None)
Quarter: 2006Q1

REPORT INFORMATION
  Report Type: 
  Country: None (occurrence: None)
  Receive Date: 20060103
  Receipt Date: 20060103
  Transmission Date: 20060701
  Serious: No
  Sender: FDA-Public Use
  Company Number: None

PATIENT
  Age: 51 Year
  Sex: Male
  Weight: 100.6985 kg

DRUGS (1)
  1. EFFEXOR XR [Suspect]
     Indication: ANXIETY
     Dosage: 150MG   1 PER DAY  PO
     Route: 048
     Dates: start: 20040901, end: 20051001

REACTIONS (7)
  - ABDOMINAL PAIN UPPER [None]
  - ANGER [None]
  - DEPRESSION [None]
  - DRUG WITHDRAWAL SYNDROME [None]
  - MALAISE [None]
  - SOMNOLENCE [None]
  - SUICIDAL IDEATION [None]
